FAERS Safety Report 4381406-6 (Version None)
Quarter: 2004Q2

REPORT INFORMATION
  Report Type: 
  Country: None (occurrence: None)
  Receive Date: 20040617
  Receipt Date: 20040617
  Transmission Date: 20050107
  Serious: Yes (Other)
  Sender: FDA-Public Use
  Company Number: None

PATIENT
  Age: 46 Year
  Sex: Female

DRUGS (9)
  1. NEURONTIN [Suspect]
     Dosage: 1 1/2 TAB BSPO
     Route: 048
     Dates: start: 20040401
  2. PREMARIN [Concomitant]
  3. SYNTHROID [Concomitant]
  4. LOTISONE [Concomitant]
  5. KEPPRA [Concomitant]
  6. SEROQUEL [Concomitant]
  7. ZOLOFT [Concomitant]
  8. DITROPAN [Concomitant]
  9. NEURONTIN [Concomitant]

REACTIONS (4)
  - BALANCE DISORDER [None]
  - FEELING ABNORMAL [None]
  - HEADACHE [None]
  - PHARMACEUTICAL PRODUCT COMPLAINT [None]
